FAERS Safety Report 9221163 (Version 2)
Quarter: 2013Q2

REPORT INFORMATION
  Report Type: Spontaneous
  Country: US (occurrence: US)
  Receive Date: 20130409
  Receipt Date: 20130614
  Transmission Date: 20140414
  Serious: Yes (Hospitalization, Disabling, Other)
  Sender: FDA-Public Use
  Company Number: US-ABBOTT-13P-163-1071568-00

PATIENT
  Sex: Male
  Weight: 77.18 kg

DRUGS (14)
  1. DEPAKOTE ER [Suspect]
     Indication: BIPOLAR DISORDER
     Dosage: TRILAED DEPAKOTE SR 250 TO 750
     Dates: start: 20070607, end: 20070703
  2. LITHIUM [Suspect]
     Indication: PRODUCT USED FOR UNKNOWN INDICATION
  3. EFFEXOR [Suspect]
     Indication: PRODUCT USED FOR UNKNOWN INDICATION
  4. WELLBUTRIN [Suspect]
     Indication: PRODUCT USED FOR UNKNOWN INDICATION
     Dosage: 150/300
     Dates: start: 20050214, end: 20060124
  5. CONCERTA [Suspect]
     Indication: PRODUCT USED FOR UNKNOWN INDICATION
     Dosage: 3 GTT
     Dates: start: 20050418
  6. CONCERTA [Suspect]
     Dosage: GTT
     Dates: start: 20071106, end: 20080320
  7. CONCERTA [Suspect]
     Dates: start: 20070112, end: 20070124
  8. ATIVAN [Suspect]
     Indication: PRODUCT USED FOR UNKNOWN INDICATION
  9. TRILEPTAL [Suspect]
     Indication: PRODUCT USED FOR UNKNOWN INDICATION
  10. AMBIEN [Suspect]
     Indication: PRODUCT USED FOR UNKNOWN INDICATION
  11. ADDUDIL [Suspect]
     Indication: PRODUCT USED FOR UNKNOWN INDICATION
     Dates: start: 20060726, end: 20060731
  12. KITOIN [Suspect]
     Indication: PRODUCT USED FOR UNKNOWN INDICATION
     Dates: start: 20060815, end: 20060824
  13. ADDURALR [Suspect]
     Indication: PRODUCT USED FOR UNKNOWN INDICATION
     Dates: start: 20060907, end: 20060912
  14. LEXAPRO [Concomitant]
     Indication: PRODUCT USED FOR UNKNOWN INDICATION
     Dates: start: 20070925, end: 20080320

REACTIONS (7)
  - Atrial fibrillation [Unknown]
  - Myocardial infarction [Unknown]
  - Panic attack [Unknown]
  - Unevaluable event [Unknown]
  - Suicide attempt [Unknown]
  - Nasopharyngitis [Unknown]
  - Gastrointestinal disorder [Unknown]
